FAERS Safety Report 12118440 (Version 1)
Quarter: 2016Q1

REPORT INFORMATION
  Report Type: Report from Study
  Country: BR (occurrence: BR)
  Receive Date: 20160226
  Receipt Date: 20160226
  Transmission Date: 20160526
  Serious: Yes (Hospitalization)
  Sender: FDA-Public Use
  Company Number: PHHY2016BR025043

PATIENT
  Sex: Male
  Weight: 79 kg

DRUGS (1)
  1. EXELON PATCH [Suspect]
     Active Substance: RIVASTIGMINE
     Indication: DEMENTIA ALZHEIMER^S TYPE
     Dosage: UNK
     Route: 062
     Dates: start: 201602

REACTIONS (5)
  - Confusional state [Unknown]
  - Agitation [Unknown]
  - Malaise [Unknown]
  - Infection [Unknown]
  - Blood potassium decreased [Unknown]
